FAERS Safety Report 7831276-6 (Version None)
Quarter: 2011Q4

REPORT INFORMATION
  Report Type: 
  Country: None (occurrence: None)
  Receive Date: 20111021
  Receipt Date: 20110927
  Transmission Date: 20120403
  Serious: Yes (Hospitalization, Disabling)
  Sender: FDA-Public Use
  Company Number: DE-ROCHE-1005715

PATIENT
  Sex: Female
  Weight: 65 kg

DRUGS (2)
  1. BENDAMUSTINE [Suspect]
     Indication: MANTLE CELL LYMPHOMA
     Dosage: DATE OF LAST DOSE PRIOR TO SAE 3/NOV/2009
     Route: 042
     Dates: start: 20090616
  2. MABTHERA [Suspect]
     Indication: MANTLE CELL LYMPHOMA
     Dosage: DATE OF LAST DOSE PRIOR TO SAE 22/JUL/2011
     Route: 042
     Dates: start: 20090615

REACTIONS (1)
  - HIDRADENITIS [None]
